FAERS Safety Report 9512998 (Version 1)
Quarter: 2013Q1

REPORT INFORMATION
  Report Type: Spontaneous
  Country: US (occurrence: None)
  Receive Date: 20130305
  Receipt Date: 20130305
  Transmission Date: 20140127
  Serious: Yes (Other)
  Sender: FDA-Public Use
  Company Number: 163-21880-12100981

PATIENT
  Age: 58 Year
  Sex: Female
  Weight: 65.77 kg

DRUGS (11)
  1. REVLIMID [Suspect]
     Indication: PLASMA CELL MYELOMA
     Dosage: 1 IN 1 D
     Route: 048
     Dates: start: 201012
  2. ATENOLOL [Concomitant]
  3. BIOTIN [Concomitant]
  4. MULTIVITAMINS [Concomitant]
  5. OMEPRAZOLE [Concomitant]
  6. OXYCONTIN [Concomitant]
  7. PERCOCET [Concomitant]
  8. VALTREX [Concomitant]
  9. WELLBUTRIN [Concomitant]
  10. XANAX [Concomitant]
  11. ZOLINZA [Concomitant]

REACTIONS (6)
  - Dyspepsia [None]
  - Dysphagia [None]
  - Throat irritation [None]
  - Dysphonia [None]
  - Cystitis interstitial [None]
  - Dysuria [None]
